FAERS Safety Report 12518264 (Version 1)
Quarter: 2016Q2

REPORT INFORMATION
  Report Type: Spontaneous
  Country: US (occurrence: US)
  Receive Date: 20160630
  Receipt Date: 20160630
  Transmission Date: 20160815
  Serious: No
  Sender: FDA-Public Use
  Company Number: PHEH2016US016267

PATIENT
  Age: 78 Year
  Sex: Female

DRUGS (1)
  1. PROMACTA [Suspect]
     Active Substance: ELTROMBOPAG OLAMINE
     Indication: MALAISE
     Dosage: 50 MG, QD
     Route: 048
     Dates: start: 20151204

REACTIONS (2)
  - Anaemia [Unknown]
  - Product use issue [Unknown]

NARRATIVE: CASE EVENT DATE: 20160527
